FAERS Safety Report 6402351-8 (Version None)
Quarter: 2009Q4

REPORT INFORMATION
  Report Type: 
  Country: None (occurrence: None)
  Receive Date: 20091015
  Receipt Date: 20091013
  Transmission Date: 20100525
  Serious: Yes (Death, Other)
  Sender: FDA-Public Use
  Company Number: PHHY2009DO44422

PATIENT
  Age: 67 Year
  Sex: Female

DRUGS (3)
  1. EXFORGE [Suspect]
     Indication: HYPERTENSION
     Dosage: 320/5 MG PER DAY
     Route: 048
  2. ESOMEPRAZOLE [Concomitant]
     Dosage: OCASIONALLY
  3. PIROXICAM [Concomitant]

REACTIONS (2)
  - CHEST PAIN [None]
  - DEATH [None]
